FAERS Safety Report 11737846 (Version 13)
Quarter: 2016Q4

REPORT INFORMATION
  Report Type: Report from Study
  Country: CO (occurrence: CO)
  Receive Date: 20151113
  Receipt Date: 20161129
  Transmission Date: 20170206
  Serious: Yes (Other)
  Sender: FDA-Public Use
  Company Number: PHHY2015CO135350

PATIENT
  Age: 62 Year
  Sex: Female
  Weight: 67 kg

DRUGS (7)
  1. TASIGNA [Suspect]
     Active Substance: NILOTINIB
     Indication: CHRONIC MYELOID LEUKAEMIA
     Dosage: 300 MG, Q12H (2 TABLETS OF 150 MG, EVERY 12 HOURS)
     Route: 048
     Dates: start: 20121201
  2. VERAPAMIL [Concomitant]
     Active Substance: VERAPAMIL HYDROCHLORIDE
     Indication: BLOOD PRESSURE INCREASED
     Dosage: 120 MG, QD
     Route: 048
  3. LOVASTATIN. [Concomitant]
     Active Substance: LOVASTATIN
     Indication: BLOOD CHOLESTEROL ABNORMAL
     Dosage: 20 MG, QD
     Route: 048
  4. CALCIUM [Concomitant]
     Active Substance: CALCIUM
     Indication: PRODUCT USED FOR UNKNOWN INDICATION
     Dosage: 1.5 MG, QD
     Route: 048
  5. HYDROCHLOROTHIAZIDE. [Concomitant]
     Active Substance: HYDROCHLOROTHIAZIDE
     Indication: DIURETIC THERAPY
     Dosage: 25 MG, QD
     Route: 048
  6. LEVOTHYROXINE. [Concomitant]
     Active Substance: LEVOTHYROXINE
     Indication: THYROID DISORDER
     Dosage: 100 MG, QD
     Route: 048
  7. METFORMIN [Concomitant]
     Active Substance: METFORMIN HYDROCHLORIDE
     Indication: DIABETES MELLITUS
     Dosage: 850 MG, QD
     Route: 048

REACTIONS (20)
  - Abdominal discomfort [Unknown]
  - Swelling [Unknown]
  - Hepatomegaly [Unknown]
  - Skin exfoliation [Unknown]
  - Cholelithiasis [Unknown]
  - Chronic myeloid leukaemia [Unknown]
  - General physical health deterioration [Unknown]
  - Hepatic steatosis [Unknown]
  - Peripheral swelling [Not Recovered/Not Resolved]
  - Anaemia [Unknown]
  - Cytogenetic analysis abnormal [Unknown]
  - Inflammation [Unknown]
  - Dizziness [Unknown]
  - Chest pain [Unknown]
  - Malignant neoplasm progression [Unknown]
  - Pain in extremity [Unknown]
  - White blood cell count decreased [Unknown]
  - Somnolence [Unknown]
  - Asthenia [Unknown]
  - Malaise [Unknown]

NARRATIVE: CASE EVENT DATE: 201509
